FAERS Safety Report 11143826 (Version 1)
Quarter: 2015Q2

REPORT INFORMATION
  Report Type: Spontaneous
  Country: US (occurrence: None)
  Receive Date: 20150527
  Receipt Date: 20150527
  Transmission Date: 20150821
  Serious: Yes (Hospitalization)
  Sender: FDA-Public Use
  Company Number: None

PATIENT
  Age: 68 Year
  Sex: Female
  Weight: 62.8 kg

DRUGS (11)
  1. FERRLECIT [Suspect]
     Active Substance: SODIUM FERRIC GLUCONATE COMPLEX
     Indication: RECTAL HAEMORRHAGE
     Dosage: 125 MG IN 100ML NS
     Dates: start: 20150525
  2. GOLYTELY [Concomitant]
     Active Substance: POLYETHYLENE GLYCOL 3350\POTASSIUM CHLORIDE\SODIUM BICARBONATE\SODIUM CHLORIDE\SODIUM SULFATE ANHYDROUS
  3. AMITRIPTYLINE [Concomitant]
     Active Substance: AMITRIPTYLINE
  4. FERRLECIT [Suspect]
     Active Substance: SODIUM FERRIC GLUCONATE COMPLEX
     Indication: ANAEMIA
     Dosage: 125 MG IN 100ML NS
     Dates: start: 20150525
  5. FERRLECIT [Suspect]
     Active Substance: SODIUM FERRIC GLUCONATE COMPLEX
     Indication: COLITIS ULCERATIVE
     Dosage: 125 MG IN 100ML NS
     Dates: start: 20150525
  6. BACTRIM [Concomitant]
     Active Substance: SULFAMETHOXAZOLE\TRIMETHOPRIM
  7. NS/KCL [Concomitant]
  8. MERCAPTOPURINE. [Concomitant]
     Active Substance: MERCAPTOPURINE
  9. SOLU-MEDROL [Concomitant]
     Active Substance: METHYLPREDNISOLONE SODIUM SUCCINATE
  10. LISINOPRIL. [Concomitant]
     Active Substance: LISINOPRIL
  11. TYLENOL [Concomitant]
     Active Substance: ACETAMINOPHEN

REACTIONS (5)
  - Heart rate increased [None]
  - Blood pressure increased [None]
  - Agitation [None]
  - Pruritus [None]
  - Respiratory rate increased [None]

NARRATIVE: CASE EVENT DATE: 20150525
